FAERS Safety Report 7179924-0 (Version None)
Quarter: 2010Q4

REPORT INFORMATION
  Report Type: 
  Country: None (occurrence: None)
  Receive Date: 20101221
  Receipt Date: 20101202
  Transmission Date: 20110411
  Serious: Yes (Other)
  Sender: FDA-Public Use
  Company Number: US-PFIZER INC-2009236124

PATIENT
  Sex: Female
  Weight: 68 kg

DRUGS (4)
  1. PROVERA [Suspect]
     Indication: MENOPAUSE
     Dosage: 10 MG, UNK
     Dates: start: 19910101, end: 19950101
  2. MEDROXYPROGESTERONE [Suspect]
     Indication: MENOPAUSE
     Dosage: 2.5 MG, UNK
     Dates: start: 19950401, end: 19990801
  3. PREMARIN [Suspect]
     Indication: MENOPAUSE
     Dosage: 0.9 MG, UNK
     Dates: start: 19910101, end: 19990801
  4. PREMPRO [Suspect]
     Indication: MENOPAUSE
     Dosage: 0.625/2.5 MG
     Dates: start: 19990801, end: 19991201

REACTIONS (1)
  - BREAST CANCER FEMALE [None]
